FAERS Safety Report 18962121 (Version 1)
Quarter: 2021Q1

REPORT INFORMATION
  Report Type: Spontaneous
  Country: FR (occurrence: FR)
  Receive Date: 20210302
  Receipt Date: 20210302
  Transmission Date: 20210420
  Serious: Yes (Disabling)
  Sender: FDA-Public Use
  Company Number: FR-SUN PHARMACEUTICAL INDUSTRIES LTD-2021RR-283560

PATIENT
  Age: 75 Year
  Sex: Female
  Weight: 77 kg

DRUGS (8)
  1. VENLAFAXINE [Suspect]
     Active Substance: VENLAFAXINE HYDROCHLORIDE
     Indication: PAIN
     Dosage: 75 MILLIGRAM, DAILY
     Route: 048
  2. UVEDOSE 100 000 UI, SOLUTION BUVABLE EN AMPOULE [Suspect]
     Active Substance: CHOLECALCIFEROL
     Indication: VITAMIN SUPPLEMENTATION
     Dosage: 1 DOSAGE FORM, MONTHLY
     Route: 048
     Dates: start: 20200611
  3. GABAPENTINE [Suspect]
     Active Substance: GABAPENTIN
     Indication: PAIN
     Dosage: 1200 MILLIGRAM, DAILY
     Route: 048
     Dates: start: 201703
  4. DOLIPRANE [Suspect]
     Active Substance: ACETAMINOPHEN
     Indication: PAIN
     Dosage: ()
     Route: 048
  5. DICODIN L.P. 60 MG, COMPRIME A LIBERATION PROLONGEE [Suspect]
     Active Substance: DIHYDROCODEINE
     Indication: PAIN
     Dosage: 120 MILLIGRAM, DAILY
     Route: 048
     Dates: start: 20200610
  6. ACLASTA [Suspect]
     Active Substance: ZOLEDRONIC ACID
     Indication: OSTEOPOROSIS
     Dosage: 1 DOSAGE FORM, DAILY
     Route: 042
     Dates: start: 201403, end: 201503
  7. URBANYL 10 MG, COMPRIME SECABLE [Suspect]
     Active Substance: CLOBAZAM
     Indication: PAIN
     Dosage: 20 MILLIGRAM, DAILY
     Route: 048
     Dates: start: 20200610
  8. LEVOTHYROX 125 MICROGRAMMES, COMPRIME SECABLE [Suspect]
     Active Substance: LEVOTHYROXINE SODIUM
     Indication: HYPOTHYROIDISM
     Dosage: 125 MICROGRAM, DAILY
     Route: 048
     Dates: start: 2013

REACTIONS (6)
  - Constipation [Recovering/Resolving]
  - Periodontitis [Not Recovered/Not Resolved]
  - Tooth fracture [Recovered/Resolved with Sequelae]
  - Dry mouth [Not Recovered/Not Resolved]
  - Dry eye [Not Recovered/Not Resolved]
  - Gingival recession [Recovered/Resolved with Sequelae]

NARRATIVE: CASE EVENT DATE: 202007
